FAERS Safety Report 6383227-1 (Version None)
Quarter: 2009Q3

REPORT INFORMATION
  Report Type: 
  Country: None (occurrence: None)
  Receive Date: 20090929
  Receipt Date: 20090914
  Transmission Date: 20100115
  Serious: No
  Sender: FDA-Public Use
  Company Number: C-09-0210

PATIENT
  Age: 62 Year
  Sex: Female
  Weight: 65.7716 kg

DRUGS (6)
  1. LACTULOSE [Suspect]
     Indication: HEPATIC ENCEPHALOPATHY
     Dosage: 30ML 4 TIMES DAILY 047
     Dates: start: 20090910, end: 20090911
  2. URSODIOL 250 MG [Concomitant]
  3. XIFAXAN (ANTIBIOTIC) 200MG [Concomitant]
  4. ONDANSETRON [Concomitant]
  5. SPIRONOLACTONE [Concomitant]
  6. HUMULIN R [Concomitant]

REACTIONS (10)
  - CONDITION AGGRAVATED [None]
  - DRUG INEFFECTIVE [None]
  - ENCEPHALOPATHY [None]
  - GASTROINTESTINAL HAEMORRHAGE [None]
  - INCORRECT PRODUCT STORAGE [None]
  - INFECTION [None]
  - LIQUID PRODUCT PHYSICAL ISSUE [None]
  - PRODUCT MEASURED POTENCY ISSUE [None]
  - PRODUCT SUBSTITUTION ISSUE [None]
  - TREATMENT FAILURE [None]
